FAERS Safety Report 19886793 (Version 1)
Quarter: 2021Q3

REPORT INFORMATION
  Report Type: Other
  Country: US (occurrence: US)
  Receive Date: 20210927
  Receipt Date: 20210927
  Transmission Date: 20211014
  Serious: Yes (Other)
  Sender: FDA-Public Use
  Company Number: US-ROCHE-2915885

PATIENT
  Sex: Female

DRUGS (2)
  1. ATORVASTATIN [Concomitant]
     Active Substance: ATORVASTATIN
  2. XELODA [Suspect]
     Active Substance: CAPECITABINE
     Indication: COLON CANCER
     Dosage: TAKE 3 TABLETS BID ON DAYS 1?14, FOLLOWED BY 7 DAYS OFF
     Route: 048

REACTIONS (3)
  - Foot fracture [Unknown]
  - Tongue disorder [Unknown]
  - Ill-defined disorder [Unknown]
